FAERS Safety Report 7328465-6 (Version None)
Quarter: 2011Q1

REPORT INFORMATION
  Report Type: 
  Country: None (occurrence: None)
  Receive Date: 20110303
  Receipt Date: 20110228
  Transmission Date: 20110831
  Serious: Yes (Hospitalization, Other)
  Sender: FDA-Public Use
  Company Number: NZ-PFIZER INC-2010173953

PATIENT
  Age: 54 Year
  Sex: Female
  Weight: 62.5 kg

DRUGS (4)
  1. DOXEPIN [Concomitant]
     Indication: SLEEP DISORDER
     Dosage: 20 MG, 1X/DAY AT NIGHT
     Route: 048
  2. LEVOTHYROXINE SODIUM [Concomitant]
     Indication: THYROID DISORDER
     Dosage: 100 UG, 1X/DAY
     Route: 048
  3. CITALOPRAM [Concomitant]
     Indication: AFFECTIVE DISORDER
     Dosage: 20 MG, 1X/DAY
     Route: 048
  4. CHAMPIX [Suspect]
     Indication: SMOKING CESSATION THERAPY
     Dosage: 1 MG, 2X/DAY
     Route: 048
     Dates: start: 20100925, end: 20101210

REACTIONS (6)
  - LOWER RESPIRATORY TRACT INFECTION [None]
  - ANXIETY [None]
  - VIRAL INFECTION [None]
  - OROPHARYNGEAL PAIN [None]
  - WHEEZING [None]
  - CHEST PAIN [None]
